FAERS Safety Report 5121450-4 (Version None)
Quarter: 2006Q4

REPORT INFORMATION
  Report Type: 
  Country: None (occurrence: None)
  Receive Date: 20061003
  Receipt Date: 20060908
  Transmission Date: 20070319
  Serious: Yes (Disabling)
  Sender: FDA-Public Use
  Company Number: 2006113832

PATIENT
  Age: 60 Year
  Sex: Female
  Weight: 51 kg

DRUGS (3)
  1. LYRICA [Suspect]
     Indication: SCIATICA
     Dosage: 150 MG (75 MG, 2 IN 1 D), ORAL
     Route: 048
     Dates: start: 20060825, end: 20060826
  2. PROGESTERONE [Concomitant]
  3. BUFLOMEDIL (BUFLOMEDIL) [Concomitant]

REACTIONS (16)
  - ARRHYTHMIA [None]
  - ASTHENIA [None]
  - BALANCE DISORDER [None]
  - DIPLOPIA [None]
  - DRY MOUTH [None]
  - EATING DISORDER [None]
  - HYPERHIDROSIS [None]
  - MICTURITION FREQUENCY DECREASED [None]
  - MUSCLE SPASMS [None]
  - NAUSEA [None]
  - NIGHTMARE [None]
  - PERSONALITY DISORDER [None]
  - SENSORY DISTURBANCE [None]
  - SOMNOLENCE [None]
  - TREMOR [None]
  - URINARY TRACT DISORDER [None]
